FAERS Safety Report 4507507-7 (Version None)
Quarter: 2004Q4

REPORT INFORMATION
  Report Type: 
  Country: None (occurrence: None)
  Receive Date: 20041123
  Receipt Date: 20041112
  Transmission Date: 20050328
  Serious: Yes (Hospitalization)
  Sender: FDA-Public Use
  Company Number: US-JNJFOC-20041103703

PATIENT
  Sex: Male
  Weight: 90.72 kg

DRUGS (15)
  1. INFLIXIMAB [Suspect]
     Indication: RHEUMATOID ARTHRITIS
     Route: 042
  2. ASPIRIN [Concomitant]
  3. PREDNISONE [Concomitant]
  4. PIROXICAM [Concomitant]
  5. VASOTEC [Concomitant]
  6. LIPITOR [Concomitant]
  7. IMURAN [Concomitant]
  8. ZOLOFT [Concomitant]
  9. PACERONE [Concomitant]
  10. METHOTREXATE [Concomitant]
  11. DIGITEK [Concomitant]
  12. FOLIC ACID [Concomitant]
  13. SYNTHROID [Concomitant]
  14. VICODIN [Concomitant]
  15. VICODIN [Concomitant]
     Dosage: 5/500 AS NEEDED FOR PAIN

REACTIONS (11)
  - ABDOMINAL PAIN UPPER [None]
  - BACK PAIN [None]
  - BILIARY COLIC [None]
  - CHOLECYSTECTOMY [None]
  - CYST [None]
  - DEEP VEIN THROMBOSIS [None]
  - DIVERTICULUM [None]
  - HERPES ZOSTER [None]
  - HYDRONEPHROSIS [None]
  - INTERVERTEBRAL DISC DEGENERATION [None]
  - NEPHROLITHIASIS [None]
